FAERS Safety Report 5117902-3 (Version None)
Quarter: 2006Q3

REPORT INFORMATION
  Report Type: 
  Country: None (occurrence: None)
  Receive Date: 20060925
  Receipt Date: 20060921
  Transmission Date: 20061208
  Serious: Yes (Hospitalization, Disabling)
  Sender: FDA-Public Use
  Company Number: 226201

PATIENT
  Age: 79 Year
  Sex: Male

DRUGS (1)
  1. ACTIVACIN (ALTEPLASE) PWDR + SOLVENT, INFUSION SOLN [Suspect]
     Indication: CEREBRAL ARTERY EMBOLISM
     Dosage: 35.3 MG, INTRAVENOUS
     Route: 042
     Dates: start: 20060216, end: 20060217

REACTIONS (7)
  - CEREBRAL ARTERY EMBOLISM [None]
  - CEREBRAL HAEMORRHAGE [None]
  - DEPRESSED LEVEL OF CONSCIOUSNESS [None]
  - EMBOLIC CEREBRAL INFARCTION [None]
  - MONOPARESIS [None]
  - PNEUMONIA ASPIRATION [None]
  - PYREXIA [None]
